FAERS Safety Report 17652470 (Version 1)
Quarter: 2020Q2

REPORT INFORMATION
  Report Type: Spontaneous
  Country: IT (occurrence: IT)
  Receive Date: 20200409
  Receipt Date: 20200409
  Transmission Date: 20200713
  Serious: Yes (Other)
  Sender: FDA-Public Use
  Company Number: IT-BIODELIVERY SCIENCES INTERNATIONAL-2020BDSI0272

PATIENT
  Age: 46 Year
  Sex: Female

DRUGS (2)
  1. FENTANYL CITRATE. [Suspect]
     Active Substance: FENTANYL CITRATE
     Indication: NEURALGIA
     Route: 065
  2. CANNABIS SATIVA [Suspect]
     Active Substance: CANNABIS SATIVA FLOWERING TOP
     Indication: NEURALGIA
     Route: 048

REACTIONS (3)
  - Confusional state [Recovered/Resolved]
  - Mental status changes [Recovered/Resolved]
  - Drug interaction [Unknown]
